FAERS Safety Report 8356132-9 (Version None)
Quarter: 2012Q2

REPORT INFORMATION
  Report Type: 
  Country: None (occurrence: None)
  Receive Date: 20120510
  Receipt Date: 20120427
  Transmission Date: 20120825
  Serious: Yes (Disabling, Other)
  Sender: FDA-Public Use
  Company Number: 2010MA001661

PATIENT
  Age: 77 Year
  Sex: Female
  Weight: 66.6788 kg

DRUGS (51)
  1. METOCLOPRAMIDE [Suspect]
     Indication: VOMITING
     Dosage: 10 MG;QID;PO
     Route: 048
     Dates: start: 20080205, end: 20090617
  2. METOCLOPRAMIDE [Suspect]
     Indication: NAUSEA
     Dosage: 10 MG;QID;PO
     Route: 048
     Dates: start: 20080205, end: 20090617
  3. LASIX [Concomitant]
  4. LYRICA [Concomitant]
  5. CEFTIN [Concomitant]
  6. VALIUM [Concomitant]
  7. DULCOLAX [Concomitant]
  8. LODINE [Concomitant]
  9. ARICEPT [Concomitant]
  10. KLONOPIN [Concomitant]
  11. GABAPENTIN [Concomitant]
  12. OMEPRAZOLE [Concomitant]
  13. CARAFATE [Concomitant]
  14. AVELOX [Concomitant]
  15. IMODIUM [Concomitant]
  16. ACTONEL [Concomitant]
  17. NEXIUM [Concomitant]
  18. NEURONTIN [Concomitant]
  19. RESTORIL [Concomitant]
  20. LAXATIVES [Concomitant]
  21. MACROBID [Concomitant]
  22. TYLENOL (CAPLET) [Concomitant]
  23. VITAMIN TAB [Concomitant]
  24. DONNATAL [Concomitant]
  25. CYMBALTA [Concomitant]
  26. AMBIEN [Concomitant]
  27. BENADRYL [Concomitant]
  28. LORTAB [Concomitant]
  29. CALCIUM [Concomitant]
  30. AUGMENTIN [Concomitant]
  31. RISPERDAL [Concomitant]
  32. PHENERGAN [Concomitant]
  33. CATAPRES [Concomitant]
  34. PROTONIX [Concomitant]
  35. VERAPAMIL [Concomitant]
  36. DIFLUCAN [Concomitant]
  37. NAPROXEN (ALEVE) [Concomitant]
  38. LEVAQUIN [Concomitant]
  39. BACTRIM [Concomitant]
  40. SKELAXINE [Concomitant]
  41. ARANESP [Concomitant]
  42. DARVOCET-N 50 [Concomitant]
  43. VANTAN [Concomitant]
  44. ULTRAM [Concomitant]
  45. ULTRACET [Concomitant]
  46. MAGNESIUM HYDROXIDE TAB [Concomitant]
  47. DOXYCYCLINE [Concomitant]
  48. TRAMADOL HYDROCHLORIDE [Concomitant]
  49. LOVENOX [Concomitant]
  50. MIRALAX [Concomitant]
  51. SIMETHICONE [Concomitant]

REACTIONS (56)
  - DYSPNOEA [None]
  - MICROCYTIC ANAEMIA [None]
  - PSYCHOSOMATIC DISEASE [None]
  - SERUM FERRITIN INCREASED [None]
  - PROCEDURAL HYPOTENSION [None]
  - TREATMENT NONCOMPLIANCE [None]
  - REFUSAL OF TREATMENT BY PATIENT [None]
  - AGITATION [None]
  - DYSPHEMIA [None]
  - OESOPHAGITIS [None]
  - WOUND DEHISCENCE [None]
  - PATHOGEN RESISTANCE [None]
  - PAIN IN EXTREMITY [None]
  - PARANOIA [None]
  - DYSARTHRIA [None]
  - DROOLING [None]
  - ABNORMAL BEHAVIOUR [None]
  - ERYTHEMA [None]
  - ANTINUCLEAR ANTIBODY POSITIVE [None]
  - ARTHRALGIA [None]
  - ANAEMIA POSTOPERATIVE [None]
  - PSYCHOTIC DISORDER [None]
  - GAIT DISTURBANCE [None]
  - SMALL INTESTINAL OBSTRUCTION [None]
  - BLOOD FOLATE INCREASED [None]
  - HYDROURETER [None]
  - NAUSEA [None]
  - ABDOMINAL PAIN UPPER [None]
  - HYPOTENSION [None]
  - RESTLESSNESS [None]
  - BUNION OPERATION [None]
  - TARDIVE DYSKINESIA [None]
  - ANXIETY [None]
  - POST PROCEDURAL HAEMORRHAGE [None]
  - ANGER [None]
  - FEELING OF DESPAIR [None]
  - HERNIA REPAIR [None]
  - WOUND HAEMORRHAGE [None]
  - ILEUS [None]
  - ARTHRITIS INFECTIVE [None]
  - NEPHROLITHIASIS [None]
  - HOSTILITY [None]
  - URINARY RETENTION [None]
  - URINARY TRACT INFECTION PSEUDOMONAL [None]
  - MYELODYSPLASTIC SYNDROME [None]
  - DYSPHAGIA [None]
  - MUSCULAR WEAKNESS [None]
  - HIP ARTHROPLASTY [None]
  - ATTENTION-SEEKING BEHAVIOUR [None]
  - CYSTITIS PSEUDOMONAL [None]
  - MOOD ALTERED [None]
  - BLOOD GLUCOSE INCREASED [None]
  - EYE PRURITUS [None]
  - DRY MOUTH [None]
  - TOE OPERATION [None]
  - ATRIAL FIBRILLATION [None]
